FAERS Safety Report 18797089 (Version 2)
Quarter: 2021Q2

REPORT INFORMATION
  Report Type: Spontaneous
  Country: US (occurrence: US)
  Receive Date: 20210128
  Receipt Date: 20210512
  Transmission Date: 20210717
  Serious: Yes (Other)
  Sender: FDA-Public Use
  Company Number: US-GILEAD-2021-0513452

PATIENT
  Sex: Male
  Weight: 77 kg

DRUGS (33)
  1. PREZISTA [Concomitant]
     Active Substance: DARUNAVIR ETHANOLATE
     Indication: HIV INFECTION
  2. ATAZANAVIR. [Concomitant]
     Active Substance: ATAZANAVIR
     Indication: HIV INFECTION
  3. VIREAD [Suspect]
     Active Substance: TENOFOVIR DISOPROXIL FUMARATE
     Dosage: UNK
     Route: 048
     Dates: start: 2010, end: 2015
  4. COMBIVIR [Concomitant]
     Active Substance: LAMIVUDINE\ZIDOVUDINE
     Indication: HIV INFECTION
  5. REYATAZ [Concomitant]
     Active Substance: ATAZANAVIR SULFATE
     Indication: HIV INFECTION
  6. CALCITRIOL. [Concomitant]
     Active Substance: CALCITRIOL
  7. FEXOFENADINE [Concomitant]
     Active Substance: FEXOFENADINE HYDROCHLORIDE
  8. NAPROXEN. [Concomitant]
     Active Substance: NAPROXEN
  9. NITROFURANTOIN. [Concomitant]
     Active Substance: NITROFURANTOIN
  10. PRAVASTATIN. [Concomitant]
     Active Substance: PRAVASTATIN
  11. RITONAVIR. [Concomitant]
     Active Substance: RITONAVIR
     Indication: HIV INFECTION
  12. TRAMADOL. [Concomitant]
     Active Substance: TRAMADOL
  13. EPIVIR [Concomitant]
     Active Substance: LAMIVUDINE
     Indication: HIV INFECTION
  14. ABACAVIR. [Concomitant]
     Active Substance: ABACAVIR
     Indication: HIV INFECTION
  15. LAMIVUDINE. [Concomitant]
     Active Substance: LAMIVUDINE
  16. PEG [MACROGOL] [Concomitant]
  17. ISENTRESS [Concomitant]
     Active Substance: RALTEGRAVIR POTASSIUM
     Indication: HIV INFECTION
  18. AMOXI CLAV [Concomitant]
     Active Substance: AMOXICILLIN\CLAVULANATE POTASSIUM
  19. FLUCONAZOLE. [Concomitant]
     Active Substance: FLUCONAZOLE
  20. AZITHROMYCIN ANHYDROUS. [Concomitant]
     Active Substance: AZITHROMYCIN ANHYDROUS
  21. DOXYCYCLINE. [Concomitant]
     Active Substance: DOXYCYCLINE
  22. GEMFIBROZIL. [Concomitant]
     Active Substance: GEMFIBROZIL
  23. IBUPROFEN. [Concomitant]
     Active Substance: IBUPROFEN
  24. NORVIR [Concomitant]
     Active Substance: RITONAVIR
     Indication: HIV INFECTION
  25. AMOXICILLIN. [Concomitant]
     Active Substance: AMOXICILLIN
  26. SODIUM BICARBONATE. [Concomitant]
     Active Substance: SODIUM BICARBONATE
  27. TAMIFLU [Concomitant]
     Active Substance: OSELTAMIVIR PHOSPHATE
  28. TESTIM [Concomitant]
     Active Substance: TESTOSTERONE
  29. VIREAD [Suspect]
     Active Substance: TENOFOVIR DISOPROXIL FUMARATE
     Indication: HIV INFECTION
     Dosage: UNK
     Route: 048
     Dates: start: 2014
  30. AMLODIPINE [Concomitant]
     Active Substance: AMLODIPINE BESYLATE
  31. CEPHALEXINE [Concomitant]
     Active Substance: CEPHALEXIN
  32. CIPROFLOXACIN. [Concomitant]
     Active Substance: CIPROFLOXACIN
  33. ZIAGEN [Concomitant]
     Active Substance: ABACAVIR SULFATE
     Indication: HIV INFECTION

REACTIONS (7)
  - Anxiety [Not Recovered/Not Resolved]
  - Chronic kidney disease [Unknown]
  - Renal failure [Unknown]
  - Emotional distress [Not Recovered/Not Resolved]
  - End stage renal disease [Not Recovered/Not Resolved]
  - Anhedonia [Not Recovered/Not Resolved]
  - Pain [Not Recovered/Not Resolved]

NARRATIVE: CASE EVENT DATE: 2010
